FAERS Safety Report 4676903-X (Version None)
Quarter: 2005Q2

REPORT INFORMATION
  Report Type: 
  Country: None (occurrence: None)
  Receive Date: 20050526
  Receipt Date: 20050420
  Transmission Date: 20051028
  Serious: Yes (Disabling)
  Sender: FDA-Public Use
  Company Number: WAES 0504USA03659

PATIENT
  Age: 65 Year
  Sex: Female

DRUGS (6)
  1. VYTORIN [Suspect]
     Indication: BLOOD CHOLESTEROL INCREASED
     Dosage: 10-40 MG/DAILY/PO
     Route: 048
     Dates: start: 20050309, end: 20050412
  2. ACEON [Concomitant]
  3. ADVIL [Concomitant]
  4. BROLENE [Concomitant]
  5. CORGARD [Concomitant]
  6. SYNTHROID [Concomitant]

REACTIONS (1)
  - MYALGIA [None]
